FAERS Safety Report 5997586-2 (Version None)
Quarter: 2008Q4

REPORT INFORMATION
  Report Type: 
  Country: None (occurrence: None)
  Receive Date: 20081212
  Receipt Date: 20081113
  Transmission Date: 20090506
  Serious: No
  Sender: FDA-Public Use
  Company Number: US-ABBOTT-08P-163-0488012-00

PATIENT
  Sex: Male

DRUGS (4)
  1. HUMIRA [Suspect]
     Indication: PSORIASIS
     Dates: start: 20080901
  2. CITALOPRAM HYDROBROMIDE [Suspect]
     Indication: DEPRESSION
     Dosage: NOT REPORTED
     Route: 048
     Dates: start: 20081001, end: 20081001
  3. CITALOPRAM HYDROBROMIDE [Suspect]
     Indication: ANXIETY
  4. VERAPAMIL HYDROCHLORIDE [Concomitant]
     Indication: HYPERTENSION

REACTIONS (4)
  - ANXIETY [None]
  - DEPRESSION [None]
  - INFLUENZA [None]
  - PSORIASIS [None]
